FAERS Safety Report 4485639-X (Version None)
Quarter: 2004Q4

REPORT INFORMATION
  Report Type: 
  Country: None (occurrence: None)
  Receive Date: 20041026
  Receipt Date: 20041018
  Transmission Date: 20050328
  Serious: Yes (Other)
  Sender: FDA-Public Use
  Company Number: US-MERCK-0410USA02691

PATIENT
  Sex: Male

DRUGS (2)
  1. VIOXX [Suspect]
     Indication: ANALGESIC EFFECT
     Route: 048
  2. VIOXX [Suspect]
     Indication: LOWER LIMB FRACTURE
     Route: 048

REACTIONS (1)
  - MYOCARDIAL INFARCTION [None]
